FAERS Safety Report 20427732 (Version 2)
Quarter: 2022Q1

REPORT INFORMATION
  Report Type: Spontaneous
  Country: US (occurrence: US)
  Receive Date: 20220204
  Receipt Date: 20220224
  Transmission Date: 20220424
  Serious: No
  Sender: FDA-Public Use
  Company Number: US-JNJFOC-20220117442

PATIENT
  Sex: Female

DRUGS (3)
  1. TYLENOL REGULAR STRENGTH [Suspect]
     Active Substance: ACETAMINOPHEN
     Indication: Procedural pain
     Dosage: PATIENT IS TAKING 1 CAPLET OF EACH (8 HOUR ARTHRITIS + REGULAR STRENGTH) ALL THE SAME TIME 3 TIMES A
     Route: 048
     Dates: start: 20220105
  2. TYLENOL 8 HR ARTHRITIS PAIN [Suspect]
     Active Substance: ACETAMINOPHEN
     Indication: Procedural pain
     Dosage: PATIENT IS TAKING 1 CAPLET OF EACH (8 HOUR ARTHRITIS + REGULAR STRENGTH) ALL THE SAME TIME 3 TIMES A
     Route: 048
     Dates: start: 20220105, end: 20220110
  3. METHOCARBAMOL [Concomitant]
     Active Substance: METHOCARBAMOL
     Indication: Knee arthroplasty
     Route: 065
     Dates: start: 20211201, end: 20220110

REACTIONS (4)
  - Diarrhoea [Recovered/Resolved]
  - Incorrect dose administered [Unknown]
  - Product administration error [Unknown]
  - Off label use [Unknown]

NARRATIVE: CASE EVENT DATE: 20220105
